FAERS Safety Report 15243696 (Version 1)
Quarter: 2018Q3

REPORT INFORMATION
  Report Type: Spontaneous
  Country: US (occurrence: US)
  Receive Date: 20180806
  Receipt Date: 20180806
  Transmission Date: 20181010
  Serious: Yes (Other)
  Sender: FDA-Public Use
  Company Number: US-SA-2018SA208446

PATIENT
  Age: 57 Year
  Sex: Female
  Weight: 80.73 kg

DRUGS (2)
  1. TAXOTERE [Suspect]
     Active Substance: DOCETAXEL
     Indication: BREAST CANCER
     Dosage: 135 MG, Q3W
     Route: 065
     Dates: start: 20080304, end: 20080304
  2. TAXOTERE [Suspect]
     Active Substance: DOCETAXEL
     Dosage: 135 MG, Q3W
     Route: 065
     Dates: start: 20080506, end: 20080506

REACTIONS (1)
  - Alopecia [Recovering/Resolving]
